FAERS Safety Report 13042748 (Version 1)
Quarter: 2016Q4

REPORT INFORMATION
  Report Type: Spontaneous
  Country: FR (occurrence: FR)
  Receive Date: 20161219
  Receipt Date: 20161219
  Transmission Date: 20170207
  Serious: Yes (Disabling, Congenital Anomaly)
  Sender: FDA-Public Use
  Company Number: FR-ABBVIE-16P-056-1573893-00

PATIENT
  Sex: Female

DRUGS (2)
  1. DEPAKINE [Suspect]
     Active Substance: VALPROATE SODIUM
     Indication: EXPOSURE VIA FATHER
  2. DEPAKINE [Suspect]
     Active Substance: VALPROATE SODIUM
     Indication: MATERNAL EXPOSURE TIMING UNSPECIFIED
     Route: 064

REACTIONS (12)
  - Scoliosis [Unknown]
  - Abnormal behaviour [Unknown]
  - Dysmorphism [Unknown]
  - Congenital musculoskeletal anomaly [Unknown]
  - Foetal exposure during pregnancy [Unknown]
  - Epilepsy [Unknown]
  - Enuresis [Unknown]
  - Developmental delay [Unknown]
  - Autism [Unknown]
  - Petit mal epilepsy [Unknown]
  - Multiple allergies [Unknown]
  - Exposure via father [Unknown]
